FAERS Safety Report 12320414 (Version 2)
Quarter: 2016Q4

REPORT INFORMATION
  Report Type: Spontaneous
  Country: US (occurrence: US)
  Receive Date: 20160501
  Receipt Date: 20161130
  Transmission Date: 20170207
  Serious: No
  Sender: FDA-Public Use
  Company Number: US-009507513-1604USA017781

PATIENT
  Sex: Female

DRUGS (1)
  1. DULERA [Suspect]
     Active Substance: FORMOTEROL FUMARATE DIHYDRATE\MOMETASONE FUROATE
     Indication: ASTHMA
     Dosage: 100/5 MICROGRAM, TWICE DAILY
     Route: 055

REACTIONS (5)
  - Product quality issue [Unknown]
  - Visual impairment [Unknown]
  - Underdose [Unknown]
  - Hypoacusis [Unknown]
  - Dyspnoea [Recovering/Resolving]
